FAERS Safety Report 6160337-5 (Version None)
Quarter: 2009Q2

REPORT INFORMATION
  Report Type: 
  Country: None (occurrence: None)
  Receive Date: 20090415
  Receipt Date: 20090415
  Transmission Date: 20091009
  Serious: No
  Sender: FDA-Public Use
  Company Number: None

PATIENT
  Age: 20 Year
  Sex: Female
  Weight: 61.2356 kg

DRUGS (4)
  1. CONCERTA [Suspect]
     Indication: ATTENTION DEFICIT/HYPERACTIVITY DISORDER
     Dosage: 54MG ONCE PER DAY PO
     Route: 048
     Dates: start: 20060830, end: 20070530
  2. SEROQUEL [Concomitant]
  3. LAMICTAL [Concomitant]
  4. PAXIL [Concomitant]

REACTIONS (1)
  - TIC [None]
